FAERS Safety Report 9898404 (Version 2)
Quarter: 2014Q3

REPORT INFORMATION
  Report Type: Spontaneous
  Country: US (occurrence: US)
  Receive Date: 20140214
  Receipt Date: 20140818
  Transmission Date: 20150326
  Serious: Yes (Other)
  Sender: FDA-Public Use
  Company Number: US-VIROPHARMA INCORPORATED-20140206CINRY5768

PATIENT
  Sex: Female

DRUGS (2)
  1. CINRYZE [Suspect]
     Active Substance: HUMAN C1-ESTERASE INHIBITOR
     Indication: HEREDITARY ANGIOEDEMA
     Dosage: UNK UNK, UNKNOWN
     Route: 042
     Dates: start: 20090305
  2. CINRYZE [Suspect]
     Active Substance: HUMAN C1-ESTERASE INHIBITOR
     Indication: PROPHYLAXIS

REACTIONS (1)
  - Skin cancer [Unknown]

NARRATIVE: CASE EVENT DATE: 2014
